FAERS Safety Report 25900772 (Version 1)
Quarter: 2025Q4

REPORT INFORMATION
  Report Type: Spontaneous
  Country: US (occurrence: US)
  Receive Date: 20251009
  Receipt Date: 20251009
  Transmission Date: 20260117
  Serious: Yes (Other)
  Sender: ABBVIE
  Company Number: US-ABBVIE-6491757

PATIENT
  Age: 79 Year
  Sex: Male
  Weight: 86.182 kg

DRUGS (2)
  1. HUMIRA [Suspect]
     Active Substance: ADALIMUMAB
     Indication: Colitis ulcerative
     Dosage: DOSE FORM SOLUTION FOR INJECTION IN PRE-FILLED PEN
     Route: 058
     Dates: start: 2010, end: 2019
  2. REMICADE [Concomitant]
     Active Substance: INFLIXIMAB
     Indication: Colitis ulcerative

REACTIONS (4)
  - Basal cell carcinoma [Recovered/Resolved]
  - Rash pruritic [Recovering/Resolving]
  - Drug specific antibody present [Recovered/Resolved]
  - Hepatic enzyme increased [Not Recovered/Not Resolved]

NARRATIVE: CASE EVENT DATE: 20190101
